FAERS Safety Report 8900130 (Version 1)
Quarter: 2012Q4

REPORT INFORMATION
  Report Type: 
  Country: BR (occurrence: BR)
  Receive Date: 20121109
  Receipt Date: 20121109
  Transmission Date: 20130627
  Serious: Yes (Other)
  Sender: FDA-Public Use
  Company Number: BR-SANOFI-AVENTIS-2012SA081202

PATIENT
  Age: 71 Year
  Sex: Male
  Weight: 85 kg

DRUGS (6)
  1. LANTUS [Suspect]
     Indication: TYPE 2 DIABETES MELLITUS
     Route: 058
     Dates: start: 2007
  2. CLIKSTAR [Suspect]
     Indication: DEVICE THERAPY
     Dates: start: 2007
  3. CONCOR [Concomitant]
     Indication: HEART DISORDER
     Route: 048
     Dates: start: 2012
  4. ASPIRINA [Concomitant]
     Indication: HEART DISORDER
     Route: 048
     Dates: start: 2002
  5. ROSUVASTATIN CALCIUM [Concomitant]
     Indication: CHOLESTEROL
     Route: 048
     Dates: start: 2002
  6. TRIMETAZIDINE HYDROCHLORIDE [Concomitant]
     Indication: HEART DISORDER
     Route: 048
     Dates: start: 2012

REACTIONS (6)
  - Vascular graft [Unknown]
  - Osteoporosis [Unknown]
  - Hyperglycaemia [Not Recovered/Not Resolved]
  - Drug ineffective [Unknown]
  - Sluggishness [Not Recovered/Not Resolved]
  - Feeling abnormal [Not Recovered/Not Resolved]
